FAERS Safety Report 4762821-5 (Version None)
Quarter: 2005Q3

REPORT INFORMATION
  Report Type: 
  Country: None (occurrence: None)
  Receive Date: 20050906
  Receipt Date: 20050823
  Transmission Date: 20060218
  Serious: Yes (Hospitalization)
  Sender: FDA-Public Use
  Company Number: MK200508-0290-1

PATIENT
  Age: 88 Year
  Sex: Male

DRUGS (7)
  1. TRAMADOL HYDROCLORIDE [Suspect]
  2. FELODIPINE [Concomitant]
  3. CLONIDINE [Concomitant]
  4. HYDROCHLOROTHIAZIDE [Concomitant]
  5. ASPIRIN [Concomitant]
  6. PAROXETINE [Concomitant]
  7. ESOMEPRAZOLE [Concomitant]

REACTIONS (4)
  - AORTIC ANEURYSM [None]
  - BLOOD PRESSURE DECREASED [None]
  - CARDIOMEGALY [None]
  - PERICARDITIS [None]
